FAERS Safety Report 24986092 (Version 4)
Quarter: 2025Q1

REPORT INFORMATION
  Report Type: Spontaneous
  Country: KR (occurrence: KR)
  Receive Date: 20250219
  Receipt Date: 20250304
  Transmission Date: 20250409
  Serious: No
  Sender: PFIZER
  Company Number: KR-PFIZER INC-PV202500018455

PATIENT
  Age: 12 Year
  Sex: Male

DRUGS (2)
  1. GENOTROPIN [Suspect]
     Active Substance: SOMATROPIN
  2. GROWTROPIN [Concomitant]

REACTIONS (3)
  - Poor quality product administered [Unknown]
  - Product contamination physical [Unknown]
  - Drug ineffective [Unknown]
